FAERS Safety Report 16113564 (Version 1)
Quarter: 2019Q1

REPORT INFORMATION
  Report Type: Spontaneous
  Country: US (occurrence: US)
  Receive Date: 20190325
  Receipt Date: 20190325
  Transmission Date: 20190418
  Serious: No
  Sender: FDA-Public Use
  Company Number: US-ALLERGAN-1842608US

PATIENT
  Age: 64 Year
  Sex: Male

DRUGS (4)
  1. LATISSE [Suspect]
     Active Substance: BIMATOPROST
     Indication: GROWTH OF EYELASHES
     Dosage: 2 GTT, QHS
     Route: 061
     Dates: start: 201806
  2. UNSPECIFIED OTHER PROSTAGLANDINS OR PROSTAMIDES [Concomitant]
     Dosage: UNK
     Route: 047
  3. ANTIBIOTIC EYE OINTMENT [Concomitant]
     Indication: EYE INFECTION
     Dosage: UNK
     Route: 047
  4. ANTIBIOTIC EYE DROP [Concomitant]
     Indication: EYE INFECTION
     Dosage: UNK
     Route: 047

REACTIONS (1)
  - Drug ineffective [Unknown]

NARRATIVE: CASE EVENT DATE: 201806
